FAERS Safety Report 9340046 (Version 1)
Quarter: 2013Q2

REPORT INFORMATION
  Report Type: Spontaneous
  Country: GB (occurrence: None)
  Receive Date: 20130605
  Receipt Date: 20130605
  Transmission Date: 20140414
  Serious: Yes (Life-Threatening)
  Sender: FDA-Public Use
  Company Number: 1737624

PATIENT
  Age: 85 Year
  Sex: Male
  Weight: 28.12 kg

DRUGS (1)
  1. MIDAZOLAM [Suspect]
     Indication: ANXIETY
     Route: 058
     Dates: start: 20130313, end: 20130314

REACTIONS (1)
  - Anaphylactic reaction [None]
